FAERS Safety Report 5302444-2 (Version None)
Quarter: 2007Q2

REPORT INFORMATION
  Report Type: 
  Country: None (occurrence: None)
  Receive Date: 20070419
  Receipt Date: 20070409
  Transmission Date: 20071010
  Serious: Yes (Hospitalization)
  Sender: FDA-Public Use
  Company Number: US-KINGPHARMUSA00001-K200700440

PATIENT

DRUGS (2)
  1. ALTACE [Suspect]
     Dosage: 10 MG, QD
     Route: 048
  2. HYDROCORTISONE [Suspect]
     Dosage: 30 MG, QD
     Route: 048

REACTIONS (7)
  - COAGULATION TIME SHORTENED [None]
  - CREATININE RENAL CLEARANCE DECREASED [None]
  - DEHYDRATION [None]
  - LOSS OF CONSCIOUSNESS [None]
  - MALAISE [None]
  - PULMONARY EMBOLISM [None]
  - RENAL FAILURE [None]
